FAERS Safety Report 8660602 (Version 2)
Quarter: 2013Q4

REPORT INFORMATION
  Report Type: Spontaneous
  Country: US (occurrence: US)
  Receive Date: 20120711
  Receipt Date: 20131101
  Transmission Date: 20140711
  Serious: No
  Sender: FDA-Public Use
  Company Number: US-009507513-1207USA000432

PATIENT
  Sex: Female

DRUGS (4)
  1. PEGINTRON [Suspect]
     Indication: HEPATITIS C
     Dosage: 0.5 ML, UNK
     Dates: start: 20120420, end: 2012
  2. PEGINTRON [Suspect]
     Dosage: 0.3 UNK, UNK
     Dates: start: 2012
  3. RIBASPHERE [Suspect]
     Dosage: 600 MG, BID
  4. INCIVEK [Suspect]

REACTIONS (1)
  - Neutropenia [Unknown]
